FAERS Safety Report 6755821-7 (Version None)
Quarter: 2010Q2

REPORT INFORMATION
  Report Type: 
  Country: None (occurrence: None)
  Receive Date: 20100524
  Receipt Date: 20100304
  Transmission Date: 20101027
  Serious: Yes (Other)
  Sender: FDA-Public Use
  Company Number: 008254

PATIENT
  Sex: Male
  Weight: 97.5 kg

DRUGS (7)
  1. CIMZIA [Suspect]
     Indication: CROHN'S DISEASE
     Dosage: (200 MG EVERY 2 WEEKS SUBCUTANEOUS)
     Route: 058
     Dates: start: 20100101, end: 20100225
  2. HYDROMORPHONE [Concomitant]
  3. SERTRALINE HCL [Concomitant]
  4. ACETAMINOPHEN [Concomitant]
  5. FAMOTIDINE [Concomitant]
  6. AMBIEN [Concomitant]
  7. OMEPRAZOLE [Concomitant]

REACTIONS (1)
  - CONVULSION [None]
